FAERS Safety Report 15331519 (Version 2)
Quarter: 2018Q4

REPORT INFORMATION
  Report Type: Spontaneous
  Country: SE (occurrence: SE)
  Receive Date: 20180829
  Receipt Date: 20181009
  Transmission Date: 20190204
  Serious: Yes (Life-Threatening, Hospitalization)
  Sender: FDA-Public Use
  Company Number: SE-SA-2018SA231073

PATIENT
  Age: 79 Year
  Sex: Female

DRUGS (19)
  1. KLEXANE [Suspect]
     Active Substance: ENOXAPARIN
     Indication: CHOLECYSTECTOMY
     Dosage: UNK UNK, UNK
     Route: 065
  2. AMLODIPINE [AMLODIPINE BESILATE] [Concomitant]
     Active Substance: AMLODIPINE BESYLATE
     Dosage: UNK UNK, UNK
     Route: 065
  3. CIRCADIN [Concomitant]
     Active Substance: MELATONIN
     Dosage: UNK UNK, UNK
     Route: 065
  4. SOLUVITE [Concomitant]
     Dosage: UNK UNK, UNK
     Route: 065
  5. EMGESAN [Concomitant]
     Active Substance: MAGNESIUM HYDROXIDE
     Dosage: UNK UNK, UNK
     Route: 065
  6. BISPROLOL COMP [Concomitant]
     Active Substance: BISOPROLOL FUMARATE\HYDROCHLOROTHIAZIDE
     Dosage: UNK UNK, UNK
     Route: 065
  7. OXASCAND [Concomitant]
     Active Substance: OXAZEPAM
     Dosage: UNK UNK, UNK
     Route: 065
  8. NUTRIFLEX [AMINO ACIDS NOS;CARBOHYDRATES NOS;ELECTROLYTES NOS] [Concomitant]
     Dosage: UNK UNK, UNK
     Route: 065
  9. SOLVEZINK [Concomitant]
     Dosage: UNK UNK, UNK
     Route: 065
  10. COMBIVENT [Concomitant]
     Active Substance: ALBUTEROL SULFATE\IPRATROPIUM BROMIDE
     Dosage: UNK UNK, UNK
     Route: 065
  11. CITALOPRAM [Concomitant]
     Active Substance: CITALOPRAM HYDROBROMIDE
     Dosage: UNK UNK, UNK
     Route: 065
  12. VITALIPID [VITAMINS NOS] [Concomitant]
     Dosage: UNK UNK, UNK
     Route: 065
  13. TAMOXIFEN [Concomitant]
     Active Substance: TAMOXIFEN
     Dosage: UNK UNK, UNK
     Route: 065
  14. NITROLINGUAL [Concomitant]
     Active Substance: NITROGLYCERIN
     Dosage: UNK UNK, UNK
     Route: 065
  15. FURIX [Concomitant]
     Active Substance: FUROSEMIDE
     Dosage: UNK UNK, UNK
     Route: 065
  16. ADDAVEN [Concomitant]
     Active Substance: ELECTROLYTES NOS\MINERALS
     Dosage: UNK UNK, UNK
     Route: 065
  17. ACETYLCYSTEINE. [Concomitant]
     Active Substance: ACETYLCYSTEINE
     Dosage: UNK UNK, UNK
     Route: 065
  18. ZOPICLONE [Concomitant]
     Active Substance: ZOPICLONE
     Dosage: UNK UNK, UNK
     Route: 065
  19. OMEPRAZOLE. [Concomitant]
     Active Substance: OMEPRAZOLE
     Dosage: UNK UNK, UNK
     Route: 065

REACTIONS (1)
  - Cutis laxa [Not Recovered/Not Resolved]

NARRATIVE: CASE EVENT DATE: 20180806
